FAERS Safety Report 16673287 (Version 2)
Quarter: 2019Q3

REPORT INFORMATION
  Report Type: Spontaneous
  Country: US (occurrence: US)
  Receive Date: 20190806
  Receipt Date: 20190827
  Transmission Date: 20191004
  Serious: No
  Sender: FDA-Public Use
  Company Number: US-PFIZER INC-2019333494

PATIENT
  Age: 67 Year
  Sex: Female
  Weight: 77 kg

DRUGS (7)
  1. IBRANCE [Suspect]
     Active Substance: PALBOCICLIB
     Dosage: UNK, CYCLIC (OCCASIONALLY 2 WEEKS ON 2 WEEKS OFF)
  2. FASLODEX [Suspect]
     Active Substance: FULVESTRANT
     Indication: NEOPLASM MALIGNANT
     Dosage: UNK
  3. XGEVA [Concomitant]
     Active Substance: DENOSUMAB
     Dosage: UNK, EVERY 3 MONTHS [UNSURE OF DOSE , INJECTION EVERY 3 MONTHS IN HER STOMACH]
     Dates: start: 2017
  4. XGEVA [Concomitant]
     Active Substance: DENOSUMAB
     Indication: NEOPLASM MALIGNANT
     Dosage: UNK, MONTHLY
     Dates: start: 201412
  5. IBRANCE [Suspect]
     Active Substance: PALBOCICLIB
     Indication: NEOPLASM MALIGNANT
     Dosage: UNK, CYCLIC(125-75 DAILY, 3 WEEKS ON 1 WEEK OFF )
     Dates: start: 201412
  6. IBRANCE [Suspect]
     Active Substance: PALBOCICLIB
     Dosage: 1 DF, DAILY (UNSURE OF DOSE, 1 CAPSULE BY MOUTH DAILY)
     Route: 048
     Dates: start: 2017, end: 201906
  7. IBRANCE [Suspect]
     Active Substance: PALBOCICLIB
     Dosage: UNK, CYCLIC (2 WEEKS ON 1 OFF)

REACTIONS (2)
  - Neoplasm progression [Not Recovered/Not Resolved]
  - White blood cell count abnormal [Unknown]

NARRATIVE: CASE EVENT DATE: 201412
